FAERS Safety Report 8476496-5 (Version None)
Quarter: 2012Q2

REPORT INFORMATION
  Report Type: 
  Country: None (occurrence: None)
  Receive Date: 20120628
  Receipt Date: 20120620
  Transmission Date: 20120825
  Serious: Yes (Other)
  Sender: FDA-Public Use
  Company Number: US-UCBSA-060141

PATIENT
  Sex: Female
  Weight: 62.14 kg

DRUGS (2)
  1. KEPPRA [Suspect]
     Dosage: 1.5 TAB IN MORNING ,1TAB IN MIDDAY AND 1.5 TAB IN EVENING
  2. NO CONCOMITANT MEDICATONS [Concomitant]

REACTIONS (9)
  - CONVULSION [None]
  - NAUSEA [None]
  - WEIGHT INCREASED [None]
  - ASTHENIA [None]
  - GAIT DISTURBANCE [None]
  - STOMATITIS [None]
  - HEADACHE [None]
  - PRODUCT TASTE ABNORMAL [None]
  - GINGIVAL PAIN [None]
